FAERS Safety Report 23878222 (Version 1)
Quarter: 2024Q2

REPORT INFORMATION
  Report Type: Spontaneous
  Country: PL (occurrence: PL)
  Receive Date: 20240521
  Receipt Date: 20240521
  Transmission Date: 20240716
  Serious: Yes (Death, Hospitalization)
  Sender: FDA-Public Use
  Company Number: PL-MEDEXUS PHARMA, INC.-2024MED00212

PATIENT
  Age: 80 Year
  Sex: Female

DRUGS (1)
  1. METHOTREXATE [Suspect]
     Active Substance: METHOTREXATE
     Indication: Rheumatoid arthritis
     Dosage: WRITTEN INSTRUCTIONS TO TAKE ^1X1^; PATIENT USED 5 OR 6 AMPOULES ON CONSECUTIVE DAYS

REACTIONS (5)
  - Acute respiratory failure [Fatal]
  - Transcription medication error [Fatal]
  - Leukopenia [Unknown]
  - Thrombocytopenia [Unknown]
  - Overdose [Fatal]
